FAERS Safety Report 14082437 (Version 1)
Quarter: 2017Q4

REPORT INFORMATION
  Report Type: Spontaneous
  Country: US (occurrence: US)
  Receive Date: 20171013
  Receipt Date: 20171013
  Transmission Date: 20180321
  Serious: No
  Sender: FDA-Public Use
  Company Number: US-GLAXOSMITHKLINE-US2017156136

PATIENT
  Sex: Male

DRUGS (17)
  1. TANZEUM [Suspect]
     Active Substance: ALBIGLUTIDE
     Dosage: 30 MG, WE
  2. FLOMAX [Concomitant]
     Active Substance: TAMSULOSIN HYDROCHLORIDE
  3. HUMALOG [Concomitant]
     Active Substance: INSULIN LISPRO
  4. LANTUS [Concomitant]
     Active Substance: INSULIN GLARGINE
  5. TRAZODONE [Concomitant]
     Active Substance: TRAZODONE HYDROCHLORIDE
  6. PRILOSEC [Concomitant]
     Active Substance: OMEPRAZOLE MAGNESIUM
  7. ALLOPURINOL. [Concomitant]
     Active Substance: ALLOPURINOL
  8. ASPIRIN. [Concomitant]
     Active Substance: ASPIRIN
  9. LIPITOR [Concomitant]
     Active Substance: ATORVASTATIN CALCIUM
  10. NEURONTIN [Concomitant]
     Active Substance: GABAPENTIN
  11. PROGRAF [Concomitant]
     Active Substance: TACROLIMUS\TACROLIMUS ANHYDROUS
  12. URSODIOL. [Concomitant]
     Active Substance: URSODIOL
  13. LOSARTAN. [Concomitant]
     Active Substance: LOSARTAN
  14. PREDNISONE. [Concomitant]
     Active Substance: PREDNISONE
  15. TRILEPTAL [Concomitant]
     Active Substance: OXCARBAZEPINE
  16. TANZEUM [Suspect]
     Active Substance: ALBIGLUTIDE
     Indication: DIABETES MELLITUS
     Dosage: 50 MG, WE
  17. IRON [Concomitant]
     Active Substance: IRON

REACTIONS (4)
  - Diarrhoea [Recovering/Resolving]
  - Wrong technique in device usage process [Unknown]
  - Vomiting [Recovered/Resolved]
  - Malaise [Recovering/Resolving]
